FAERS Safety Report 24196005 (Version 1)
Quarter: 2024Q3

REPORT INFORMATION
  Report Type: Spontaneous
  Country: US (occurrence: US)
  Receive Date: 20240809
  Receipt Date: 20240809
  Transmission Date: 20241017
  Serious: Yes (Death)
  Sender: NOVARTIS
  Company Number: US-002147023-NVSC2024US162266

PATIENT
  Age: 28 Year
  Sex: Male

DRUGS (4)
  1. ASCIMINIB [Suspect]
     Active Substance: ASCIMINIB
     Indication: Philadelphia chromosome positive
     Dosage: AS FIFTH LINE TREATMENT
     Route: 065
  2. ASCIMINIB [Suspect]
     Active Substance: ASCIMINIB
     Indication: B-cell type acute leukaemia
  3. PONATINIB [Suspect]
     Active Substance: PONATINIB
     Indication: Philadelphia chromosome positive
     Dosage: AS FIFTH LINE TREATMENT
     Route: 065
  4. PONATINIB [Suspect]
     Active Substance: PONATINIB
     Indication: B-cell type acute leukaemia

REACTIONS (3)
  - B-cell type acute leukaemia [Fatal]
  - Malignant neoplasm progression [Fatal]
  - Product use in unapproved indication [Unknown]
